FAERS Safety Report 18401622 (Version 3)
Quarter: 2020Q4

REPORT INFORMATION
  Report Type: Spontaneous
  Country: US (occurrence: US)
  Receive Date: 20201019
  Receipt Date: 20201118
  Transmission Date: 20210114
  Serious: No
  Sender: FDA-Public Use
  Company Number: US-PFIZER INC-2020393365

PATIENT
  Age: 12 Year
  Sex: Male
  Weight: 30.53 kg

DRUGS (3)
  1. GENOTROPIN [Suspect]
     Active Substance: SOMATROPIN
     Dosage: 1.4 MG, ALTERNATE DAY (1.2MG ONE NIGHT AND THEN 1.4 MG THE NEXT NIGHT/ TO GET AN AVERAGE OF 1.3 MG)
  2. GENOTROPIN [Suspect]
     Active Substance: SOMATROPIN
     Indication: DWARFISM
     Dosage: 1.2 MG, ALTERNATE DAY (1.2MG ONE NIGHT AND THEN 1.4 MG THE NEXT NIGHT/ TO GET AN AVERAGE OF 1.3 MG)
  3. GENOTROPIN [Suspect]
     Active Substance: SOMATROPIN
     Indication: BLOOD GROWTH HORMONE ABNORMAL
     Dosage: 1 MG

REACTIONS (7)
  - Incorrect dose administered [Unknown]
  - Product odour abnormal [Unknown]
  - Device breakage [Unknown]
  - Wrong technique in device usage process [Unknown]
  - Drug dose omission by device [Unknown]
  - Poor quality product administered [Unknown]
  - Device leakage [Unknown]

NARRATIVE: CASE EVENT DATE: 20201008
